FAERS Safety Report 9637457 (Version 1)
Quarter: 2013Q4

REPORT INFORMATION
  Report Type: Spontaneous
  Country: BR (occurrence: BR)
  Receive Date: 20131022
  Receipt Date: 20131022
  Transmission Date: 20140711
  Serious: Yes (Other)
  Sender: FDA-Public Use
  Company Number: BR-AMGEN-BRASP2013073514

PATIENT
  Sex: Female
  Weight: 94 kg

DRUGS (6)
  1. ENBREL [Suspect]
     Indication: PSORIASIS
     Dosage: 50 MG, WEEKLY
     Route: 065
  2. ENBREL [Suspect]
     Dosage: 50 MG, QWK
     Route: 065
  3. LOSARTAN [Concomitant]
     Indication: HYPERTENSION
     Dosage: UNK
     Dates: start: 2011
  4. TEGRETOL [Concomitant]
     Indication: SYNCOPE
     Dosage: UNK
     Dates: start: 1983
  5. FRISIUM [Concomitant]
     Indication: SYNCOPE
     Dosage: UNK
     Dates: start: 1996
  6. ATENOLOL [Concomitant]
     Dosage: UNK

REACTIONS (2)
  - Joint destruction [Not Recovered/Not Resolved]
  - Neuralgia [Not Recovered/Not Resolved]
